FAERS Safety Report 25149221 (Version 2)
Quarter: 2025Q4

REPORT INFORMATION
  Report Type: Report from Study
  Country: IN (occurrence: IN)
  Receive Date: 20250402
  Receipt Date: 20251217
  Transmission Date: 20260118
  Serious: Yes (Hospitalization, Other)
  Sender: CIPLA
  Company Number: IN-CIPLA LTD.-2025IN03507

PATIENT

DRUGS (5)
  1. CHLORTHALIDONE\TELMISARTAN [Suspect]
     Active Substance: CHLORTHALIDONE\TELMISARTAN
     Indication: Hypertension
     Dosage: DOSE 1, QD (1-OD), STRENGTH: 40/12.5 (UNITS UNSPECIFIED)
     Route: 048
  2. METOPROLOL SUCCINATE [Suspect]
     Active Substance: METOPROLOL SUCCINATE
     Indication: Hypertension
     Dosage: DOSE 1, QD (1-OD), STRENGTH: 50 (UNITS UNSPECIFIED)
     Route: 048
  3. ANGIPLAT [Concomitant]
     Indication: Product used for unknown indication
     Dosage: UNK, BID (1-BD), STRENGTH: 2.5 (UNITS UNSPECIFIED)
     Route: 065
  4. LIPICURE GOLD [Concomitant]
     Indication: Product used for unknown indication
     Dosage: UNK (1-HS), STREMGTH: 40 MG
     Route: 065
  5. CLONAFIT [Concomitant]
     Indication: Product used for unknown indication
     Dosage: UNK, (1-HS), SOS
     Route: 065

REACTIONS (3)
  - Acute myocardial infarction [Not Recovered/Not Resolved]
  - Diabetes mellitus [Not Recovered/Not Resolved]
  - Asthenia [Not Recovered/Not Resolved]

NARRATIVE: CASE EVENT DATE: 20250301
